FAERS Safety Report 20089591 (Version 1)
Quarter: 2021Q4

REPORT INFORMATION
  Report Type: Spontaneous
  Country: IT (occurrence: IT)
  Receive Date: 20211119
  Receipt Date: 20211119
  Transmission Date: 20220303
  Serious: Yes (Other)
  Sender: FDA-Public Use
  Company Number: IT-VELOXIS PHARMACEUTICALS-2021VELIT-000784

PATIENT
  Age: 70 Year
  Sex: Male

DRUGS (2)
  1. TACROLIMUS [Suspect]
     Active Substance: TACROLIMUS
     Indication: Renal transplant
     Dosage: UNK UNK, UNKNOWN FREQ.
     Route: 065
     Dates: start: 2010, end: 202008
  2. MYCOPHENOLIC ACID [Concomitant]
     Active Substance: MYCOPHENOLIC ACID
     Indication: Renal transplant
     Dosage: UNK, UNKNOWN FREQ.
     Route: 065
     Dates: start: 2010

REACTIONS (2)
  - Toxicity to various agents [Unknown]
  - Toxic optic neuropathy [Recovered/Resolved]

NARRATIVE: CASE EVENT DATE: 20200801
